FAERS Safety Report 7245263 (Version 5)
Quarter: 2013Q2

REPORT INFORMATION
  Report Type: Spontaneous
  Country: US (occurrence: US)
  Receive Date: 20100113
  Receipt Date: 20130607
  Transmission Date: 20140414
  Serious: Yes (Death, Hospitalization, Other)
  Sender: FDA-Public Use
  Company Number: US-PFIZER INC-2010001618

PATIENT
  Age: 41 Year
  Sex: Female

DRUGS (11)
  1. HYDROXYZINE PAMOATE [Suspect]
     Dosage: UNK
     Route: 048
     Dates: start: 2008
  2. VENLAFAXINE HCL [Suspect]
     Dosage: UNK
     Route: 048
     Dates: start: 2008
  3. ZOLPIDEM [Suspect]
     Dosage: UNK
     Route: 048
     Dates: start: 2008
  4. ACETAMINOPHEN/DIPHENHYDRAMINE [Suspect]
     Dosage: UNK
     Route: 048
     Dates: start: 2008
  5. OXYMORPHONE [Suspect]
     Dosage: UNK
     Route: 048
     Dates: start: 2008
  6. ACETYLSALICYLIC ACID [Suspect]
     Dosage: UNK
     Route: 048
     Dates: start: 2008
  7. QUETIAPINE [Suspect]
     Dosage: UNK
     Route: 048
     Dates: start: 2008
  8. CLONAZEPAM [Suspect]
     Dosage: UNK
     Route: 048
     Dates: start: 2008
  9. BUTALBITAL [Suspect]
     Route: 048
  10. CARISOPRODOL [Concomitant]
     Route: 065
  11. HYDROCODONE W/ACETAMINOPHEN [Concomitant]
     Route: 065

REACTIONS (9)
  - Completed suicide [Fatal]
  - Multi-organ failure [Fatal]
  - Unresponsive to stimuli [Not Recovered/Not Resolved]
  - Cyanosis [Unknown]
  - Hypotension [Not Recovered/Not Resolved]
  - Acidosis [Unknown]
  - Pneumonia aspiration [Unknown]
  - Pancreatitis [Unknown]
  - Electroencephalogram abnormal [Unknown]
